FAERS Safety Report 4925875-9 (Version None)
Quarter: 2006Q1

REPORT INFORMATION
  Report Type: 
  Country: None (occurrence: None)
  Receive Date: 20060228
  Receipt Date: 20050406
  Transmission Date: 20060701
  Serious: No
  Sender: FDA-Public Use
  Company Number: US-GLAXOSMITHKLINE-A0553040A

PATIENT
  Age: 28 Year
  Sex: Female

DRUGS (3)
  1. LAMOTRIGINE [Suspect]
     Indication: BIPOLAR DISORDER
     Dosage: 150MG TWICE PER DAY
     Route: 048
     Dates: start: 20030101
  2. SEROQUEL [Concomitant]
  3. EFFEXOR [Concomitant]

REACTIONS (2)
  - COORDINATION ABNORMAL [None]
  - DIZZINESS [None]
